FAERS Safety Report 22526713 (Version 1)
Quarter: 2023Q2

REPORT INFORMATION
  Report Type: Spontaneous
  Country: CN (occurrence: CN)
  Receive Date: 20230606
  Receipt Date: 20230606
  Transmission Date: 20230721
  Serious: Yes (Other)
  Sender: FDA-Public Use
  Company Number: CN-BAYER-2023A077223

PATIENT
  Age: 49 Year
  Sex: Female
  Weight: 60 kg

DRUGS (2)
  1. ULTRAVIST [Suspect]
     Active Substance: IOPROMIDE
     Indication: Scan with contrast
     Dosage: 65 ML, ONCE
     Route: 042
     Dates: start: 20230523, end: 20230523
  2. ULTRAVIST [Suspect]
     Active Substance: IOPROMIDE
     Indication: Aortic thrombosis

REACTIONS (4)
  - Hemianaesthesia [Recovered/Resolved]
  - Skin warm [Recovered/Resolved]
  - Respiratory rate increased [None]
  - Blood pressure increased [None]

NARRATIVE: CASE EVENT DATE: 20230523
